FAERS Safety Report 5922529-7 (Version None)
Quarter: 2008Q4

REPORT INFORMATION
  Report Type: 
  Country: None (occurrence: None)
  Receive Date: 20081017
  Receipt Date: 20081008
  Transmission Date: 20090506
  Serious: Yes (Other)
  Sender: FDA-Public Use
  Company Number: PHHY2008BR24231

PATIENT
  Age: 72 Year
  Sex: Female

DRUGS (4)
  1. DIOVAN [Suspect]
     Indication: HYPERTENSION
     Dosage: 1 TABLET
     Route: 048
     Dates: end: 20080901
  2. DIOVAN [Suspect]
     Dosage: 1/2 TABLET
     Route: 048
  3. ALENDRONATE SODIUM [Concomitant]
     Indication: OSTEOPOROSIS
     Dosage: 1 TABLET/WEEK
     Route: 048
  4. GINKGO BILOBA [Concomitant]
     Indication: CARDIOVASCULAR DISORDER
     Dosage: 1 TABLET IN TH EMORNING
     Route: 048

REACTIONS (5)
  - BLOOD PRESSURE FLUCTUATION [None]
  - BLOOD PRESSURE INCREASED [None]
  - DISORIENTATION [None]
  - DIZZINESS [None]
  - HEADACHE [None]
